FAERS Safety Report 7405112-6 (Version None)
Quarter: 2011Q2

REPORT INFORMATION
  Report Type: 
  Country: None (occurrence: None)
  Receive Date: 20110411
  Receipt Date: 20110328
  Transmission Date: 20111010
  Serious: Yes (Hospitalization)
  Sender: FDA-Public Use
  Company Number: US-ASTRAZENECA-2011SE17719

PATIENT
  Age: 18271 Day
  Sex: Male
  Weight: 110 kg

DRUGS (9)
  1. STRATTERA [Concomitant]
     Dates: start: 20050701
  2. MIRTAZAPINE [Concomitant]
     Indication: DEPRESSION
     Route: 048
     Dates: start: 20040922
  3. CLONAZEPAM [Concomitant]
     Dosage: 1-3 MG
     Route: 048
     Dates: start: 20040629
  4. HALDOL [Concomitant]
     Dates: start: 20050701
  5. ACETAMINOPHEN/CODEIN [Concomitant]
     Indication: PAIN
     Dosage: TAKE 1-2 TABETS BY MOUTH EVERY 4 HOURS AS NEEDED
     Route: 048
     Dates: start: 20040629
  6. REMERON [Concomitant]
     Dates: start: 20050701
  7. CLINDAMYCIN HCL [Concomitant]
     Indication: INFECTION
     Route: 048
     Dates: start: 20040629
  8. SEROQUEL [Suspect]
     Dosage: 50-200 MG
     Route: 048
     Dates: start: 20040922
  9. CARBAMAZEPINE [Concomitant]
     Dosage: 200-600MG
     Route: 048
     Dates: start: 20040713

REACTIONS (7)
  - HYPONATRAEMIA [None]
  - ACTIVATED PARTIAL THROMBOPLASTIN TIME PROLONGED [None]
  - RENAL FAILURE [None]
  - DIABETIC KETOACIDOSIS [None]
  - LEUKOCYTOSIS [None]
  - AGITATION [None]
  - MENTAL STATUS CHANGES [None]
